FAERS Safety Report 20816684 (Version 1)
Quarter: 2022Q2

REPORT INFORMATION
  Report Type: Report from Study
  Country: ES (occurrence: ES)
  Receive Date: 20220512
  Receipt Date: 20220512
  Transmission Date: 20220720
  Serious: Yes (Death, Other)
  Sender: FDA-Public Use
  Company Number: ES-BEH-2022145023

PATIENT
  Age: 65 Year
  Sex: Female
  Weight: 72 kg

DRUGS (1)
  1. RIASTAP [Suspect]
     Active Substance: FIBRINOGEN HUMAN
     Indication: Hypofibrinogenaemia
     Dosage: 6 GRAM
     Route: 042
     Dates: start: 20210126, end: 20210126

REACTIONS (16)
  - Abdominal infection [Fatal]
  - Atrial fibrillation [Unknown]
  - Clostridium difficile colitis [Unknown]
  - Sepsis [Unknown]
  - Infection [Unknown]
  - Biliary fistula [Unknown]
  - Candida infection [Unknown]
  - Enterococcus test positive [Unknown]
  - Citrobacter test positive [Unknown]
  - Hepatic artery haemorrhage [Unknown]
  - Hepatic artery haemorrhage [Unknown]
  - Melaena [Unknown]
  - Haemodynamic instability [Unknown]
  - Shock haemorrhagic [Fatal]
  - Acute hepatic failure [Fatal]
  - Multiple organ dysfunction syndrome [Fatal]

NARRATIVE: CASE EVENT DATE: 20210101
